FAERS Safety Report 8510444-4 (Version None)
Quarter: 2012Q3

REPORT INFORMATION
  Report Type: 
  Country: None (occurrence: None)
  Receive Date: 20120715
  Receipt Date: 20120702
  Transmission Date: 20120928
  Serious: Yes (Death)
  Sender: FDA-Public Use
  Company Number: FR-TEVA-346427ISR

PATIENT
  Age: 85 Year
  Sex: Female

DRUGS (2)
  1. PREDNISONE [Suspect]
     Indication: RHEUMATOID VASCULITIS
     Dosage: 5 MILLIGRAM; 5 MG/D
     Route: 048
  2. RITUXIMAB [Suspect]
     Indication: RHEUMATOID VASCULITIS
     Dosage: RECEIVED 4 INFUSIONS
     Route: 050

REACTIONS (1)
  - SEPSIS [None]
